FAERS Safety Report 14023593 (Version 2)
Quarter: 2017Q4

REPORT INFORMATION
  Report Type: Spontaneous
  Country: US (occurrence: US)
  Receive Date: 20170929
  Receipt Date: 20171005
  Transmission Date: 20180321
  Serious: Yes (Other)
  Sender: FDA-Public Use
  Company Number: US-BAYER-2017-183994

PATIENT
  Age: 29 Year
  Sex: Female

DRUGS (1)
  1. MIRENA [Suspect]
     Active Substance: LEVONORGESTREL
     Indication: CONTRACEPTION
     Dosage: 20 MCG/24HR, CONT
     Route: 015
     Dates: start: 2013, end: 20170703

REACTIONS (7)
  - Drug ineffective [None]
  - Gait disturbance [Not Recovered/Not Resolved]
  - Pregnancy with contraceptive device [None]
  - Abortion spontaneous [None]
  - Pelvic inflammatory disease [Not Recovered/Not Resolved]
  - Pelvic pain [Not Recovered/Not Resolved]
  - Impaired work ability [Not Recovered/Not Resolved]

NARRATIVE: CASE EVENT DATE: 2016
